FAERS Safety Report 6128224-6 (Version None)
Quarter: 2009Q1

REPORT INFORMATION
  Report Type: 
  Country: None (occurrence: None)
  Receive Date: 20090319
  Receipt Date: 20090303
  Transmission Date: 20090719
  Serious: Yes (Hospitalization)
  Sender: FDA-Public Use
  Company Number: 8043921

PATIENT
  Age: 14 Year
  Sex: Female

DRUGS (1)
  1. NIFE [Suspect]
     Indication: HYPERTENSION
     Dosage: 20 MG 2/D

REACTIONS (15)
  - ABDOMINAL PAIN [None]
  - ANXIETY [None]
  - AREFLEXIA [None]
  - BRADYCARDIA [None]
  - CHROMATURIA [None]
  - CIRCULATORY COLLAPSE [None]
  - CONFUSIONAL STATE [None]
  - DIARRHOEA [None]
  - HALLUCINATION, VISUAL [None]
  - MUSCULAR WEAKNESS [None]
  - PAIN [None]
  - PARALYSIS FLACCID [None]
  - PORPHYRIA ACUTE [None]
  - TACHYCARDIA [None]
  - VOMITING [None]
